FAERS Safety Report 7435857-3 (Version None)
Quarter: 2011Q2

REPORT INFORMATION
  Report Type: 
  Country: None (occurrence: None)
  Receive Date: 20110418
  Receipt Date: 20110406
  Transmission Date: 20111010
  Serious: Yes (Other)
  Sender: FDA-Public Use
  Company Number: JPI-P-014520

PATIENT
  Age: 41 Year
  Sex: Female

DRUGS (4)
  1. XYREM [Suspect]
     Indication: SLEEP DISORDER
     Dosage: 6 GM (3 GM,2 IN 1 D),ORAL ; 8 GM (4 GM,2 IN 1 D),ORAL
     Route: 048
     Dates: start: 20080918
  2. XYREM [Suspect]
     Indication: CHRONIC FATIGUE SYNDROME
     Dosage: 6 GM (3 GM,2 IN 1 D),ORAL ; 8 GM (4 GM,2 IN 1 D),ORAL
     Route: 048
     Dates: start: 20080918
  3. XYREM [Suspect]
     Indication: SLEEP DISORDER
     Dosage: 6 GM (3 GM,2 IN 1 D),ORAL ; 8 GM (4 GM,2 IN 1 D),ORAL
     Route: 048
     Dates: start: 20101216
  4. XYREM [Suspect]
     Indication: CHRONIC FATIGUE SYNDROME
     Dosage: 6 GM (3 GM,2 IN 1 D),ORAL ; 8 GM (4 GM,2 IN 1 D),ORAL
     Route: 048
     Dates: start: 20101216

REACTIONS (1)
  - CONVULSION [None]
